FAERS Safety Report 6684021-4 (Version None)
Quarter: 2010Q2

REPORT INFORMATION
  Report Type: 
  Country: None (occurrence: None)
  Receive Date: 20100416
  Receipt Date: 20100330
  Transmission Date: 20101027
  Serious: Yes (Other)
  Sender: FDA-Public Use
  Company Number: US-BAYER-201018933NA

PATIENT
  Sex: Male

DRUGS (1)
  1. FACTOR VIII [Suspect]
     Indication: HAEMOPHILIA
     Dates: start: 19970101

REACTIONS (1)
  - ACQUIRED IMMUNODEFICIENCY SYNDROME [None]
